FAERS Safety Report 4577164-2 (Version None)
Quarter: 2005Q1

REPORT INFORMATION
  Report Type: 
  Country: None (occurrence: None)
  Receive Date: 20050208
  Receipt Date: 20050126
  Transmission Date: 20050727
  Serious: Yes (Other)
  Sender: FDA-Public Use
  Company Number: 2005021056

PATIENT
  Sex: Female

DRUGS (1)
  1. CELEBREX [Suspect]
     Indication: ILL-DEFINED DISORDER
     Dosage: 600 OR 800 MG A DAY (1 IN 1D), ORAL
     Route: 048

REACTIONS (2)
  - CARDIAC DISORDER [None]
  - SURGERY [None]
